FAERS Safety Report 23733099 (Version 4)
Quarter: 2024Q4

REPORT INFORMATION
  Report Type: Spontaneous
  Country: US (occurrence: US)
  Receive Date: 20240411
  Receipt Date: 20241216
  Transmission Date: 20250115
  Serious: No
  Sender: PFIZER
  Company Number: US-PFIZER INC-2021283843

PATIENT
  Age: 60 Year
  Sex: Female

DRUGS (2)
  1. PREMARIN [Suspect]
     Active Substance: ESTROGENS, CONJUGATED
     Dosage: UNK
  2. PREMARIN [Suspect]
     Active Substance: ESTROGENS, CONJUGATED
     Dosage: TAKE 1 TABLET (0.9 MG TOTAL) BY MOUTH DAILY)
     Route: 048
     Dates: start: 20220414

REACTIONS (2)
  - Spinal column injury [Unknown]
  - Product prescribing error [Unknown]
